FAERS Safety Report 4338645-X (Version None)
Quarter: 2004Q2

REPORT INFORMATION
  Report Type: 
  Country: None (occurrence: None)
  Receive Date: 20040414
  Receipt Date: 20040405
  Transmission Date: 20050107
  Serious: Yes (Hospitalization)
  Sender: FDA-Public Use
  Company Number: PHBS2004BR04704

PATIENT
  Age: 14 Year
  Sex: Female

DRUGS (2)
  1. CODATEN [Suspect]
     Indication: PAIN
     Dosage: 1 TABLET, Q8H
     Route: 048
     Dates: start: 20040326, end: 20040326
  2. MIOSAN [Concomitant]
     Indication: INFLAMMATION
     Dosage: 1 TABLET, Q12H
     Route: 048
     Dates: start: 20040326, end: 20040326

REACTIONS (10)
  - AGITATION [None]
  - DIPLOPIA [None]
  - DIZZINESS [None]
  - DRUG HYPERSENSITIVITY [None]
  - HEADACHE [None]
  - IRRITABILITY [None]
  - NAUSEA [None]
  - STRABISMUS [None]
  - VERTIGO [None]
  - VOMITING [None]
